FAERS Safety Report 10028977 (Version 1)
Quarter: 2014Q1

REPORT INFORMATION
  Report Type: Spontaneous
  Country: IN (occurrence: IN)
  Receive Date: 20140321
  Receipt Date: 20140321
  Transmission Date: 20141002
  Serious: Yes (Hospitalization)
  Sender: FDA-Public Use
  Company Number: PHHY2014IN032993

PATIENT
  Age: 53 Year
  Sex: Male

DRUGS (5)
  1. DICLOFENAC [Suspect]
  2. ONDANSETRON [Suspect]
  3. TRAMADOL [Suspect]
  4. PARACETAMOL SANDOZ [Suspect]
  5. NORMAL SALINE [Suspect]
     Route: 042

REACTIONS (10)
  - Drug eruption [Unknown]
  - Rash pruritic [Recovered/Resolved]
  - Mouth ulceration [Recovered/Resolved]
  - Skin erosion [Recovered/Resolved]
  - Ulcer [Recovered/Resolved]
  - Tenderness [Recovered/Resolved]
  - Pain [Recovered/Resolved]
  - Scab [Recovered/Resolved]
  - Erythema [Recovered/Resolved]
  - Skin plaque [Recovered/Resolved]
